FAERS Safety Report 14426958 (Version 2)
Quarter: 2018Q1

REPORT INFORMATION
  Report Type: Report from Study
  Country: US (occurrence: MX)
  Receive Date: 20180123
  Receipt Date: 20180129
  Transmission Date: 20180509
  Serious: Yes (Other)
  Sender: FDA-Public Use
  Company Number: US-SUNOVION-2018SUN000158

PATIENT
  Age: 66 Year
  Sex: Female

DRUGS (3)
  1. PIRFENIDONE. [Concomitant]
     Active Substance: PIRFENIDONE
     Dosage: UNKNOWN
  2. GLYCOPYRROLATE. [Suspect]
     Active Substance: GLYCOPYRROLATE
     Indication: BRONCHITIS CHRONIC
     Dosage: 1 DF, QD  (50MCG)
     Route: 065
     Dates: start: 201710, end: 20171215
  3. ANTIBIOTICS [Concomitant]
     Active Substance: UNSPECIFIED INGREDIENT
     Dosage: UNKNOWN

REACTIONS (4)
  - Pain [Recovered/Resolved]
  - Glossitis [Recovered/Resolved]
  - Drug intolerance [Recovered/Resolved]
  - Headache [Recovered/Resolved]

NARRATIVE: CASE EVENT DATE: 201710
